FAERS Safety Report 4380627-6 (Version None)
Quarter: 2004Q2

REPORT INFORMATION
  Report Type: 
  Country: None (occurrence: None)
  Receive Date: 20040618
  Receipt Date: 20040609
  Transmission Date: 20050107
  Serious: Yes (Death, Hospitalization, Other)
  Sender: FDA-Public Use
  Company Number: PHBS2004JP07662

PATIENT
  Age: 22 Year
  Sex: Male

DRUGS (5)
  1. CYCLOSPORINE [Suspect]
     Indication: BONE MARROW TRANSPLANT
     Route: 065
  2. METHOTREXATE [Suspect]
     Indication: BONE MARROW TRANSPLANT
     Route: 065
  3. CYTARABINE [Suspect]
     Indication: BONE MARROW TRANSPLANT
  4. CYCLOPHOSPHAMIDE [Suspect]
     Indication: BONE MARROW TRANSPLANT
  5. IRRADIATION [Suspect]
     Indication: BONE MARROW TRANSPLANT

REACTIONS (9)
  - BLOOD BILIRUBIN INCREASED [None]
  - BLOOD LACTATE DEHYDROGENASE INCREASED [None]
  - DIARRHOEA HAEMORRHAGIC [None]
  - ENCEPHALOPATHY [None]
  - GRAFT VERSUS HOST DISEASE [None]
  - HAPTOGLOBIN DECREASED [None]
  - RED BLOOD CELL SCHISTOCYTES PRESENT [None]
  - RETICULOCYTE COUNT INCREASED [None]
  - THROMBOTIC MICROANGIOPATHY [None]
